FAERS Safety Report 8810003 (Version 1)
Quarter: 2012Q4

REPORT INFORMATION
  Report Type: 
  Country: DE (occurrence: DE)
  Receive Date: 20120926
  Receipt Date: 20120926
  Transmission Date: 20130627
  Serious: Yes (Other)
  Sender: FDA-Public Use
  Company Number: DE-TEVA-359104GER

PATIENT
  Sex: Female
  Weight: 71 kg

DRUGS (3)
  1. SERTRALIN [Suspect]
     Indication: DEPRESSION
     Dosage: 25 Milligram Daily;
     Route: 048
     Dates: start: 20110410, end: 20120102
  2. FOLIO FORTE [Concomitant]
     Indication: PROPHYLAXIS OF NEURAL TUBE DEFECT
     Dosage: .8 Milligram Daily;
     Route: 048
     Dates: start: 20110410
  3. CYTOTEC [Concomitant]
     Indication: LABOUR INDUCTION
     Route: 048
     Dates: start: 20120112, end: 20120112

REACTIONS (1)
  - Stillbirth [Recovered/Resolved]
